FAERS Safety Report 8418190-2 (Version None)
Quarter: 2012Q2

REPORT INFORMATION
  Report Type: 
  Country: None (occurrence: None)
  Receive Date: 20120531
  Receipt Date: 20100210
  Transmission Date: 20120825
  Serious: Yes (Death, Life-Threatening, Hospitalization, Disabling, Other)
  Sender: FDA-Public Use
  Company Number: 502107

PATIENT
  Age: 63 Year
  Sex: Male
  Weight: 83.9154 kg

DRUGS (1)
  1. HEPARIN SODIUM INJECTION [Suspect]
     Indication: PRODUCT USED FOR UNKNOWN INDICATION
     Dosage: INTRAVENOUS
     Route: 042

REACTIONS (8)
  - INFECTION [None]
  - NAIL DISCOLOURATION [None]
  - PERIPHERAL COLDNESS [None]
  - RENAL NECROSIS [None]
  - FINGER AMPUTATION [None]
  - HYPERSENSITIVITY [None]
  - LEG AMPUTATION [None]
  - SKIN NECROSIS [None]
